FAERS Safety Report 8305639-9 (Version None)
Quarter: 2012Q2

REPORT INFORMATION
  Report Type: 
  Country: None (occurrence: None)
  Receive Date: 20120423
  Receipt Date: 20120418
  Transmission Date: 20120825
  Serious: Yes (Other)
  Sender: FDA-Public Use
  Company Number: US-PFIZER INC-2012097033

PATIENT
  Sex: Male
  Weight: 63.5 kg

DRUGS (8)
  1. HYDROCHLOROTHIAZIDE [Concomitant]
     Indication: FLUID RETENTION
     Dosage: 12.5 MG, DAILY
  2. LOSARTAN [Concomitant]
     Indication: AORTIC VALVE INCOMPETENCE
  3. OXYCODONE [Concomitant]
     Indication: BACK PAIN
  4. LOSARTAN [Concomitant]
     Indication: BLOOD PRESSURE ABNORMAL
     Dosage: 25 MG, DAILY
  5. OXYCODONE [Concomitant]
     Indication: PAIN IN EXTREMITY
  6. ACETYLSALICYLIC ACID [Concomitant]
     Dosage: 81 MG, DAILY
  7. OXYCODONE [Concomitant]
     Indication: ARTHRALGIA
     Dosage: UNK
  8. LIPITOR [Suspect]
     Indication: BLOOD CHOLESTEROL ABNORMAL
     Dosage: 10 MG, DAILY
     Route: 048
     Dates: start: 19950101, end: 20120401

REACTIONS (1)
  - LUNG CARCINOMA CELL TYPE UNSPECIFIED STAGE IV [None]
